FAERS Safety Report 10977748 (Version 2)
Quarter: 2015Q2

REPORT INFORMATION
  Report Type: Spontaneous
  Country: US (occurrence: None)
  Receive Date: 20150331
  Receipt Date: 20150403
  Transmission Date: 20150821
  Serious: Yes (Hospitalization)
  Sender: FDA-Public Use
  Company Number: INS201503-000096

PATIENT
  Age: 56 Year
  Sex: Female
  Weight: 41.27 kg

DRUGS (4)
  1. HYDROCODONE (HYDROCODONE) [Concomitant]
     Active Substance: HYDROCODONE
  2. SUBSYS [Suspect]
     Active Substance: FENTANYL
     Indication: PAIN
     Dosage: 400 UG
     Dates: start: 201310
  3. CARAFATE (SUCRALFATE) (SUCRALFATE) [Concomitant]
  4. SUBSYS [Suspect]
     Active Substance: FENTANYL
     Dosage: 400 UG
     Dates: start: 201310

REACTIONS (10)
  - Device related infection [None]
  - Scar [None]
  - Pain in extremity [None]
  - Staphylococcal infection [None]
  - Nausea [None]
  - Malaise [None]
  - Vomiting [None]
  - Drug withdrawal syndrome [None]
  - Gastric perforation [None]
  - Weight decreased [None]
